FAERS Safety Report 8480925-0 (Version None)
Quarter: 2012Q2

REPORT INFORMATION
  Report Type: 
  Country: None (occurrence: None)
  Receive Date: 20120623
  Receipt Date: 20120613
  Transmission Date: 20120825
  Serious: Yes (Hospitalization, Other)
  Sender: FDA-Public Use
  Company Number: JP-ACCORD-009396

PATIENT
  Age: 83 Year
  Sex: Male

DRUGS (3)
  1. DOCETAXEL [Suspect]
     Indication: PROSTATE CANCER
  2. CARBOPLATIN [Suspect]
     Indication: PROSTATE CANCER
  3. ESTRAMUSTINE [Concomitant]
     Indication: PROSTATE CANCER

REACTIONS (6)
  - ENTEROCOLITIS INFECTIOUS [None]
  - HYPOMAGNESAEMIA [None]
  - HYPOCALCAEMIA [None]
  - DEHYDRATION [None]
  - OFF LABEL USE [None]
  - PARAESTHESIA [None]
